FAERS Safety Report 10591018 (Version 1)
Quarter: 2014Q4

REPORT INFORMATION
  Report Type: Spontaneous
  Country: US (occurrence: US)
  Receive Date: 20141118
  Receipt Date: 20141118
  Transmission Date: 20150529
  Serious: Yes (Other)
  Sender: FDA-Public Use
  Company Number: US-CELGENE-USA-2014112237

PATIENT
  Age: 49 Year
  Sex: Female
  Weight: 125 kg

DRUGS (1)
  1. REVLIMID [Suspect]
     Active Substance: LENALIDOMIDE
     Indication: PLASMA CELL MYELOMA
     Dosage: 25 MILLIGRAM
     Route: 048
     Dates: start: 20140930

REACTIONS (3)
  - Infection [Unknown]
  - Rash [Unknown]
  - Bone disorder [Unknown]

NARRATIVE: CASE EVENT DATE: 20141001
